FAERS Safety Report 5084597-7 (Version None)
Quarter: 2006Q3

REPORT INFORMATION
  Report Type: 
  Country: None (occurrence: None)
  Receive Date: 20060821
  Receipt Date: 20060815
  Transmission Date: 20061208
  Serious: Yes (Death, Hospitalization)
  Sender: FDA-Public Use
  Company Number: 2006GB01422

PATIENT
  Sex: Male

DRUGS (5)
  1. ATACAND [Suspect]
     Indication: HYPERTENSION
     Route: 048
     Dates: start: 20060601
  2. ONE-ALPHA [Suspect]
     Route: 065
  3. INSULIN [Concomitant]
  4. SEROXAT [Concomitant]
  5. LIPITOR [Concomitant]

REACTIONS (1)
  - BLOOD POTASSIUM INCREASED [None]
